FAERS Safety Report 24989385 (Version 1)
Quarter: 2025Q1

REPORT INFORMATION
  Report Type: Spontaneous
  Country: SE (occurrence: SE)
  Receive Date: 20250220
  Receipt Date: 20250220
  Transmission Date: 20250409
  Serious: Yes (Hospitalization, Other)
  Sender: ORGANON
  Company Number: SE-TEVA-VS-3284660

PATIENT
  Age: 68 Year
  Sex: Female

DRUGS (4)
  1. ALENDRONATE SODIUM [Suspect]
     Active Substance: ALENDRONATE SODIUM
     Indication: Product used for unknown indication
     Dosage: UNK UNK, QW
  2. CANDESARTAN CILEXETIL\HYDROCHLOROTHIAZIDE [Suspect]
     Active Substance: CANDESARTAN CILEXETIL\HYDROCHLOROTHIAZIDE
     Indication: Product used for unknown indication
     Route: 065
     Dates: start: 20241021
  3. METOPROLOL [Suspect]
     Active Substance: METOPROLOL
     Indication: Product used for unknown indication
  4. METOPROLOL [Suspect]
     Active Substance: METOPROLOL

REACTIONS (18)
  - Eye pain [Recovered/Resolved]
  - Blindness [Recovered/Resolved]
  - Visual impairment [Recovered/Resolved]
  - Paraesthesia [Not Recovered/Not Resolved]
  - Neuralgia [Recovering/Resolving]
  - Chest pain [Recovered/Resolved]
  - Ophthalmic migraine [Recovering/Resolving]
  - Insomnia [Recovering/Resolving]
  - Nausea [Recovering/Resolving]
  - Dizziness [Recovering/Resolving]
  - Cough [Not Recovered/Not Resolved]
  - Hypotension [Recovered/Resolved]
  - Muscle spasms [Recovering/Resolving]
  - Fall [Unknown]
  - Limb injury [Unknown]
  - Headache [Not Recovered/Not Resolved]
  - Peripheral coldness [Not Recovered/Not Resolved]
  - Hypoaesthesia [Recovering/Resolving]

NARRATIVE: CASE EVENT DATE: 20240101
